FAERS Safety Report 19732751 (Version 2)
Quarter: 2021Q3

REPORT INFORMATION
  Report Type: Spontaneous
  Country: US (occurrence: US)
  Receive Date: 20210823
  Receipt Date: 20210928
  Transmission Date: 20211014
  Serious: Yes (Other)
  Sender: FDA-Public Use
  Company Number: US-JNJFOC-20210827749

PATIENT
  Age: 41 Year
  Sex: Male
  Weight: 104.42 kg

DRUGS (1)
  1. RISPERDAL [Suspect]
     Active Substance: RISPERIDONE
     Indication: SCHIZOPHRENIA
     Dosage: TAKES 1 TABLET EACH OF THE 1MG AND 2MG RISPERDAL
     Route: 048
     Dates: start: 2001

REACTIONS (3)
  - Hallucination, auditory [Unknown]
  - Psychotic disorder [Unknown]
  - Abnormal behaviour [Unknown]

NARRATIVE: CASE EVENT DATE: 2021
